FAERS Safety Report 8021244-6 (Version None)
Quarter: 2012Q1

REPORT INFORMATION
  Report Type: 
  Country: None (occurrence: None)
  Receive Date: 20120104
  Receipt Date: 20111227
  Transmission Date: 20120608
  Serious: Yes (Hospitalization)
  Sender: FDA-Public Use
  Company Number: US-BAYER-2011-034321

PATIENT
  Age: 54 Year
  Sex: Female
  Weight: 58.957 kg

DRUGS (9)
  1. YASMIN [Suspect]
     Indication: HORMONE REPLACEMENT THERAPY
     Dosage: UNK
     Dates: start: 20081001, end: 20090409
  2. ATIVAN [Concomitant]
     Dosage: UNK
     Dates: start: 20090323
  3. ANGELIQ [Concomitant]
     Indication: ORAL CONTRACEPTION
  4. YAZ [Suspect]
     Indication: HORMONE REPLACEMENT THERAPY
     Dosage: UNK
     Dates: start: 20081001, end: 20090409
  5. ZYRTEC [Concomitant]
     Dosage: UNK
     Dates: start: 20081112
  6. TOPAMAX [Concomitant]
     Dosage: 25 MG, QD
     Route: 048
     Dates: start: 20081014
  7. DROSPIRENONE AND ETHINYL ESTRADIOL [Suspect]
     Indication: HORMONE REPLACEMENT THERAPY
     Dosage: UNK
     Dates: start: 20081001, end: 20090401
  8. TENUATE [Concomitant]
     Dosage: 75 MG, QD
     Route: 048
     Dates: start: 20081014
  9. ADIPEX-P [Concomitant]
     Dosage: 37.5 MG, QD
     Route: 048
     Dates: start: 20090327

REACTIONS (5)
  - PARALYSIS [None]
  - PAIN [None]
  - CEREBROVASCULAR ACCIDENT [None]
  - MOBILITY DECREASED [None]
  - EMOTIONAL DISTRESS [None]
